FAERS Safety Report 18889073 (Version 1)
Quarter: 2021Q1

REPORT INFORMATION
  Report Type: Spontaneous
  Country: DE (occurrence: DE)
  Receive Date: 20210212
  Receipt Date: 20210212
  Transmission Date: 20210420
  Serious: Yes (Other)
  Sender: FDA-Public Use
  Company Number: DE-ELI_LILLY_AND_COMPANY-DE202102005926

PATIENT
  Sex: Female
  Weight: 100 kg

DRUGS (11)
  1. RANITIDIN [Suspect]
     Active Substance: RANITIDINE HYDROCHLORIDE
     Indication: CHRONIC GASTRITIS
     Dosage: 300 MG, UNKNOWN
     Route: 065
     Dates: start: 1999
  2. RANITIDIN [Suspect]
     Active Substance: RANITIDINE HYDROCHLORIDE
     Indication: HIATUS HERNIA
     Dosage: 300 MG, UNKNOWN
     Route: 065
     Dates: start: 201710, end: 201802
  3. MIRTAZAPINE. [Suspect]
     Active Substance: MIRTAZAPINE
     Indication: PRODUCT USED FOR UNKNOWN INDICATION
     Dosage: 15 MG, DAILY (EVENING)
     Route: 065
  4. PARACETAMOL [Concomitant]
     Active Substance: ACETAMINOPHEN
     Indication: PRODUCT USED FOR UNKNOWN INDICATION
     Dosage: UNK, UNKNOWN
     Route: 065
     Dates: start: 20030623
  5. DULOXETINE HYDROCHLORIDE. [Suspect]
     Active Substance: DULOXETINE HYDROCHLORIDE
     Indication: FIBROMYALGIA
  6. DOXEPIN [Suspect]
     Active Substance: DOXEPIN
     Indication: PRODUCT USED FOR UNKNOWN INDICATION
     Dosage: UNK, UNKNOWN
     Route: 065
  7. DULOXETINE HYDROCHLORIDE. [Suspect]
     Active Substance: DULOXETINE HYDROCHLORIDE
     Indication: PAIN
     Dosage: 60 MG, DAILY (EVENING)
     Route: 065
     Dates: end: 201010
  8. TILIDIN [Suspect]
     Active Substance: NALOXONE HYDROCHLORIDE\TILIDINE HYDROCHLORIDE
     Indication: PAIN
     Dosage: 8 MG, DAILY (4 MG, BID)
     Route: 065
  9. RANITIDIN [Suspect]
     Active Substance: RANITIDINE HYDROCHLORIDE
     Indication: GASTROOESOPHAGEAL REFLUX DISEASE
     Dosage: 300 MG, UNKNOWN
     Route: 065
     Dates: start: 201510, end: 201703
  10. RANITIDIN [Suspect]
     Active Substance: RANITIDINE HYDROCHLORIDE
     Dosage: 300 MG, UNKNOWN
     Route: 065
     Dates: start: 201806, end: 202001
  11. KATADOLON [FLUPIRTINE MALEATE] [Suspect]
     Active Substance: FLUPIRTINE MALEATE
     Indication: PRODUCT USED FOR UNKNOWN INDICATION
     Dosage: UNK UNK, DAILY
     Route: 065

REACTIONS (10)
  - Tenosynovitis [Unknown]
  - Blister [Unknown]
  - Sinusitis [Unknown]
  - Sinus pain [Unknown]
  - Cervicobrachial syndrome [Unknown]
  - Neuralgia [Unknown]
  - Giant cell arteritis [Unknown]
  - Arthralgia [Unknown]
  - Arthritis [Unknown]
  - Weight increased [Unknown]

NARRATIVE: CASE EVENT DATE: 200301
